FAERS Safety Report 9374771 (Version 1)
Quarter: 2013Q2

REPORT INFORMATION
  Report Type: Spontaneous
  Country: FR (occurrence: FR)
  Receive Date: 20130628
  Receipt Date: 20130628
  Transmission Date: 20140414
  Serious: Yes (Life-Threatening)
  Sender: FDA-Public Use
  Company Number: FR-ASTRAZENECA-2013SE48476

PATIENT
  Age: 13141 Day
  Sex: Female

DRUGS (4)
  1. CELOCURINE [Suspect]
     Indication: INDUCTION OF ANAESTHESIA
     Route: 042
     Dates: start: 20130118, end: 20130118
  2. XYLOCAINE [Suspect]
     Indication: ANALGESIC THERAPY
     Route: 042
     Dates: start: 20130118, end: 20130118
  3. PROPOFOL [Suspect]
     Indication: INDUCTION OF ANAESTHESIA
     Route: 042
     Dates: start: 20130118, end: 20130118
  4. TAGAMET [Concomitant]
     Dosage: 400 MG/100 ML, 1 DF ONCE
     Route: 042
     Dates: start: 20130118, end: 20130118

REACTIONS (1)
  - Anaphylactic shock [Recovered/Resolved]
